FAERS Safety Report 6644730-X (Version None)
Quarter: 2010Q1

REPORT INFORMATION
  Report Type: 
  Country: None (occurrence: None)
  Receive Date: 20100322
  Receipt Date: 20100310
  Transmission Date: 20100710
  Serious: Yes (Other)
  Sender: FDA-Public Use
  Company Number: US-PFIZER INC-2010031888

PATIENT
  Sex: Female
  Weight: 81.6 kg

DRUGS (4)
  1. DIFLUCAN [Suspect]
     Indication: FUNGAL INFECTION
     Dosage: 100 MG, 1X/DAY
     Route: 048
     Dates: start: 20000101
  2. DIFLUCAN [Suspect]
     Dosage: UNK
     Route: 048
  3. FLUCONAZOLE [Suspect]
     Indication: FUNGAL INFECTION
     Dosage: 100 MG, DAILY
     Route: 048
     Dates: start: 20100224
  4. DRUG, UNSPECIFIED [Concomitant]
     Dosage: UNK

REACTIONS (10)
  - DYSPEPSIA [None]
  - HAEMATEMESIS [None]
  - HYPERSENSITIVITY [None]
  - INFECTION [None]
  - MALAISE [None]
  - MOUTH HAEMORRHAGE [None]
  - MUSCLE SPASMS [None]
  - PAIN [None]
  - RECTAL HAEMORRHAGE [None]
  - ULCER [None]
